FAERS Safety Report 8893535 (Version 1)
Quarter: 2012Q4

REPORT INFORMATION
  Report Type: 
  Country: US (occurrence: US)
  Receive Date: 20121108
  Receipt Date: 20121108
  Transmission Date: 20130627
  Serious: No
  Sender: FDA-Public Use
  Company Number: US-PFIZER INC-2012278534

PATIENT
  Age: 85 Year
  Sex: Female

DRUGS (2)
  1. LIPITOR [Suspect]
     Indication: BLOOD CHOLESTEROL ABNORMAL
     Dosage: 20 mg, daily
     Route: 048
  2. LIPITOR [Suspect]
     Dosage: 10 mg (cutting the 20mg tablets into half), daily
     Route: 048

REACTIONS (6)
  - Gait disturbance [Unknown]
  - Fatigue [Unknown]
  - Micturition disorder [Unknown]
  - Headache [Unknown]
  - Malaise [Unknown]
  - Myalgia [Unknown]
